FAERS Safety Report 17808064 (Version 5)
Quarter: 2020Q3

REPORT INFORMATION
  Report Type: Report from Study
  Country: HU (occurrence: HU)
  Receive Date: 20200520
  Receipt Date: 20200721
  Transmission Date: 20201102
  Serious: Yes (Death, Hospitalization)
  Sender: FDA-Public Use
  Company Number: HU-ROCHE-2603708

PATIENT
  Age: 78 Year
  Sex: Male
  Weight: 64 kg

DRUGS (6)
  1. COBIMETINIB. [Suspect]
     Active Substance: COBIMETINIB
     Indication: NEOPLASM
     Dosage: ON 03/MAY/2018, HE RECEIVED THE MOST RECENT DOSE OF THE ORAL COBIMETINIB 60 MG PRIOR TO AE/SAE(ADVER
     Route: 048
     Dates: start: 20180404
  2. ATEZOLIZUMAB. [Suspect]
     Active Substance: ATEZOLIZUMAB
     Indication: NEOPLASM
     Dosage: ON 01/APR/2020 , HE RECEIVED THE MOST RECENT DOSE OF THE INTRAVENOUS ATEZOLIZUMAB 840 MG PRIOR TO AE
     Route: 042
     Dates: start: 20180404
  3. DICLOFENAC [Concomitant]
     Active Substance: DICLOFENAC
     Indication: CANCER PAIN
     Dates: start: 20180312
  4. LEVOTHYROXINE. [Concomitant]
     Active Substance: LEVOTHYROXINE
     Indication: HYPOTHYROIDISM
     Dates: start: 20180312
  5. ALUMINIUM ACETOTARTRATE [Concomitant]
     Active Substance: ALUMINIUM ACETOTARTRATE
     Indication: DERMATITIS
     Dates: start: 20181215
  6. SUSPENSIO ZINCI OLEOSA [Concomitant]
     Indication: DERMATITIS
     Dates: start: 20181212

REACTIONS (1)
  - Pneumonia [Fatal]

NARRATIVE: CASE EVENT DATE: 20200508
